FAERS Safety Report 4969302-4 (Version None)
Quarter: 2006Q2

REPORT INFORMATION
  Report Type: 
  Country: None (occurrence: None)
  Receive Date: 20060411
  Receipt Date: 20060316
  Transmission Date: 20061013
  Serious: Yes (Hospitalization)
  Sender: FDA-Public Use
  Company Number: DE-ROCHE-440847

PATIENT
  Age: 65 Year
  Sex: Male
  Weight: 87 kg

DRUGS (27)
  1. ROFERON-A [Suspect]
     Indication: METASTATIC RENAL CELL CARCINOMA
     Dosage: DOSE GIVEN ON DAY ONE OF WEEK 1
     Route: 058
     Dates: start: 20060203, end: 20060203
  2. ROFERON-A [Suspect]
     Dosage: 10 MIU/M2 GIVEN ON DAYS 1, 3 AND 5 IN WEEKS 5 THROUGH TO 8. (THIS CYCLE WEEKS 1 TO 4 WERE NOT GIVEN+
     Route: 058
     Dates: start: 20051209, end: 20060103
  3. ROFERON-A [Suspect]
     Dosage: 5 MIU/M2 GIVEN ON DAY 1 OF WEEKS 1 AND 4 AND ON DAYS 1, 3 AND 5 IN WEEKS 2 AND 3. 10 MIU/M2 GIVEN O+
     Route: 058
     Dates: start: 20050829, end: 20051016
  4. INTERFERON ALFA-2A [Suspect]
     Indication: METASTATIC RENAL CELL CARCINOMA
     Route: 058
     Dates: start: 20050629, end: 20050810
  5. BLINDED BEVACIZUMAB [Suspect]
     Indication: METASTATIC RENAL CELL CARCINOMA
     Route: 042
     Dates: start: 20050629, end: 20050810
  6. PROLEUKIN [Suspect]
     Indication: METASTATIC RENAL CELL CARCINOMA
     Dosage: DOSE GIVEN TWICE DAILY ON DAYS 3 TO 5 IN WEEKS 1 TO 4
     Route: 058
     Dates: start: 20060205, end: 20060207
  7. PROLEUKIN [Suspect]
     Dosage: DOSE GIVEN TWICE DAILY ON DAYS 3 TO 5 IN WEEKS 1 TO 4
     Route: 058
     Dates: start: 20050831, end: 20050912
  8. FLUOROURACIL [Suspect]
     Indication: METASTATIC RENAL CELL CARCINOMA
     Dosage: DOSE GIVEN ONCE WEEKLY IN WEEKS 5 TO 8
     Route: 042
     Dates: start: 20051209, end: 20051230
  9. FLUOROURACIL [Suspect]
     Dosage: DOSE GIVEN ONCE WEEKLY IN WEEKS 5 TO 8
     Route: 042
     Dates: start: 20050918, end: 20051012
  10. DECORTIN H [Concomitant]
     Dates: start: 20050629, end: 20050810
  11. 1 CONCOMITANT DRUG [Concomitant]
     Dosage: DRUG NAME REPORTED AS ^ZOLIDAX^
     Dates: start: 20040915
  12. ALLO 300 [Concomitant]
     Dates: start: 19770915
  13. ALNA [Concomitant]
     Dates: start: 20050315
  14. DICLAC [Concomitant]
     Dates: start: 20040915
  15. LANITOP MITE [Concomitant]
     Dates: start: 19780915
  16. METOSTAD COMP [Concomitant]
     Dates: start: 19660615
  17. NOVALGIN [Concomitant]
     Dates: start: 20040915
  18. PANTOZOL [Concomitant]
     Dates: start: 20040915
  19. MCP [Concomitant]
     Dates: start: 20050824
  20. VERGENTAN [Concomitant]
     Dates: start: 20050629
  21. ZOFRAN [Concomitant]
     Dates: start: 20060206
  22. PANTHENOL SALBE [Concomitant]
     Dates: start: 20050824
  23. PROVIDE [Concomitant]
     Dosage: PROVIDE EXTRA DRINK (MIXED)
     Dates: start: 20050926, end: 20051015
  24. FRESUBIN [Concomitant]
     Dosage: FRESUBIN ENERGY DRINK MIXED
     Dates: start: 20050926, end: 20051015
  25. NOVAMINSULFON-RATIOPHARM [Concomitant]
     Dates: start: 20050824
  26. FORTECORTIN [Concomitant]
     Dates: start: 20051007, end: 20051115
  27. LASIX [Concomitant]
     Dates: start: 20051128, end: 20060115

REACTIONS (7)
  - CACHEXIA [None]
  - DECREASED APPETITE [None]
  - DIARRHOEA [None]
  - DRY SKIN [None]
  - FLUID INTAKE REDUCED [None]
  - NAUSEA [None]
  - PAIN [None]
